FAERS Safety Report 23544000 (Version 3)
Quarter: 2024Q1

REPORT INFORMATION
  Report Type: Spontaneous
  Country: US (occurrence: US)
  Receive Date: 20240220
  Receipt Date: 20240321
  Transmission Date: 20240410
  Serious: No
  Sender: FDA-Public Use
  Company Number: US-PFIZER INC-202400035214

PATIENT
  Age: 28 Year
  Sex: Female

DRUGS (3)
  1. GENOTROPIN [Suspect]
     Active Substance: SOMATROPIN
     Indication: Short stature
     Dosage: 12 MG, DAILY
  2. GENOTROPIN [Suspect]
     Active Substance: SOMATROPIN
     Indication: Prader-Willi syndrome
     Dosage: ALTERNATE 0.4MG AND 0.6MG DAILY
  3. GENOTROPIN [Suspect]
     Active Substance: SOMATROPIN
     Dosage: ALTERNATE 0.4MG AND 0.6MG DAILY

REACTIONS (2)
  - Drug dose omission by device [Unknown]
  - Device breakage [Unknown]
